FAERS Safety Report 25357572 (Version 4)
Quarter: 2025Q4

REPORT INFORMATION
  Report Type: Spontaneous
  Country: JP (occurrence: JP)
  Receive Date: 20250526
  Receipt Date: 20251027
  Transmission Date: 20260117
  Serious: Yes (Death, Hospitalization, Other)
  Sender: MERCK SHARP & DOHME LLC
  Company Number: JP-009507513-2288416

PATIENT
  Age: 25 Year
  Sex: Female

DRUGS (6)
  1. KEYTRUDA [Suspect]
     Active Substance: PEMBROLIZUMAB
     Indication: Invasive ductal breast carcinoma
     Dosage: TIME INTERVAL: CYCLICAL: FIRST CYCLE
     Route: 041
  2. KEYTRUDA [Suspect]
     Active Substance: PEMBROLIZUMAB
     Indication: Invasive ductal breast carcinoma
     Dosage: TIME INTERVAL: CYCLICAL
     Route: 041
  3. PACLITAXEL [Suspect]
     Active Substance: PACLITAXEL
     Indication: Invasive ductal breast carcinoma
     Dosage: TIME INTERVAL: CYCLICAL
  4. CARBOPLATIN [Suspect]
     Active Substance: CARBOPLATIN
     Indication: Invasive ductal breast carcinoma
     Dosage: TIME INTERVAL: CYCLICAL
  5. EPIRUBICIN HYDROCHLORIDE [Suspect]
     Active Substance: EPIRUBICIN HYDROCHLORIDE
     Indication: Invasive ductal breast carcinoma
     Dosage: TIME INTERVAL: CYCLICAL
  6. CYCLOPHOSPHAMIDE [Suspect]
     Active Substance: CYCLOPHOSPHAMIDE
     Indication: Invasive ductal breast carcinoma
     Dosage: TIME INTERVAL: CYCLICAL

REACTIONS (9)
  - Malignant neoplasm progression [Fatal]
  - Vomiting [Unknown]
  - Immune-mediated myocarditis [Unknown]
  - Nausea [Unknown]
  - Hepatic failure [Unknown]
  - Productive cough [Unknown]
  - Pyrexia [Unknown]
  - Therapy partial responder [Unknown]
  - Cough [Unknown]
